FAERS Safety Report 8621699-X (Version None)
Quarter: 2012Q3

REPORT INFORMATION
  Report Type: 
  Country: None (occurrence: None)
  Receive Date: 20120821
  Receipt Date: 20120821
  Transmission Date: 20120928
  Serious: Yes (Death)
  Sender: FDA-Public Use
  Company Number: None

PATIENT
  Age: 30 Year
  Sex: Female
  Weight: 74.3899 kg

DRUGS (1)
  1. CHORIONIC GONADTROPIN [Suspect]
     Indication: WEIGHT CONTROL
     Dosage: 5 DROPS, TWICE DAILY, SL
     Route: 060
     Dates: start: 20110101, end: 20110118

REACTIONS (2)
  - ARRHYTHMIA [None]
  - METABOLIC DISORDER [None]
